FAERS Safety Report 24744929 (Version 26)
Quarter: 2025Q4

REPORT INFORMATION
  Report Type: Report from Study
  Country: US (occurrence: US)
  Receive Date: 20241217
  Receipt Date: 20251217
  Transmission Date: 20260118
  Serious: Yes (Life-Threatening, Other)
  Sender: PFIZER
  Company Number: US-PFIZER INC-202400322901

PATIENT
  Age: 18 Year
  Sex: Female
  Weight: 68.04 kg

DRUGS (2)
  1. DEPO-PROVERA [Suspect]
     Active Substance: MEDROXYPROGESTERONE ACETATE
     Indication: Contraception
     Dosage: UNK, EVERY 3 MONTHS
     Route: 030
     Dates: start: 2004, end: 2004
  2. MINERALS\VITAMINS [Concomitant]
     Active Substance: MINERALS\VITAMINS
     Dosage: UNK

REACTIONS (24)
  - Heavy menstrual bleeding [Not Recovered/Not Resolved]
  - Hypotension [Unknown]
  - Haemoglobin decreased [Unknown]
  - Anaemia [Not Recovered/Not Resolved]
  - Iron deficiency anaemia [Not Recovered/Not Resolved]
  - Blood iron decreased [Unknown]
  - Uterine cancer [Not Recovered/Not Resolved]
  - Neoplasm malignant [Unknown]
  - Cerebrovascular accident [Unknown]
  - Blindness [Unknown]
  - Brain neoplasm [Unknown]
  - Abdominal neoplasm [Unknown]
  - Drug intolerance [Unknown]
  - Drug hypersensitivity [Unknown]
  - Migraine [Unknown]
  - Memory impairment [Unknown]
  - Headache [Unknown]
  - Benign neoplasm [Unknown]
  - Uterine contractions abnormal [Unknown]
  - Uterine leiomyoma [Unknown]
  - Neoplasm [Unknown]
  - Injury [Unknown]
  - Illness [Unknown]
  - Pain [Unknown]

NARRATIVE: CASE EVENT DATE: 20040101
